FAERS Safety Report 20145751 (Version 1)
Quarter: 2021Q4

REPORT INFORMATION
  Report Type: Report from Study
  Country: CA (occurrence: CA)
  Receive Date: 20211203
  Receipt Date: 20211203
  Transmission Date: 20220304
  Serious: Yes (Hospitalization)
  Sender: FDA-Public Use
  Company Number: CA-JNJFOC-20211163061

PATIENT
  Sex: Male
  Weight: 79.5 kg

DRUGS (4)
  1. SIMPONI [Suspect]
     Active Substance: GOLIMUMAB
     Indication: Psoriasis
     Route: 058
     Dates: start: 20060221, end: 20061102
  2. ADALIMUMAB [Concomitant]
     Active Substance: ADALIMUMAB
     Dates: end: 201107
  3. ETANERCEPT [Concomitant]
     Active Substance: ETANERCEPT
     Dates: start: 2011, end: 20210518
  4. IXEKIZUMAB [Concomitant]
     Active Substance: IXEKIZUMAB
     Dates: start: 20210705

REACTIONS (2)
  - Pyelonephritis acute [Recovered/Resolved]
  - Gastritis viral [Recovered/Resolved]

NARRATIVE: CASE EVENT DATE: 20210911
